FAERS Safety Report 23647505 (Version 2)
Quarter: 2024Q1

REPORT INFORMATION
  Report Type: Spontaneous
  Country: US (occurrence: US)
  Receive Date: 20240319
  Receipt Date: 20240329
  Transmission Date: 20240409
  Serious: No
  Sender: FDA-Public Use
  Company Number: US-SA-SAC20240309000013

PATIENT
  Age: 70 Year
  Sex: Female

DRUGS (3)
  1. TZIELD [Suspect]
     Active Substance: TEPLIZUMAB-MZWV
     Dosage: 97.5 UG, 1X
     Route: 042
     Dates: start: 20240305, end: 20240305
  2. TZIELD [Suspect]
     Active Substance: TEPLIZUMAB-MZWV
     Dosage: 187.5 UG, 1X
     Route: 042
     Dates: start: 20240306, end: 20240306
  3. TZIELD [Suspect]
     Active Substance: TEPLIZUMAB-MZWV
     Dosage: 1545 UG
     Route: 042
     Dates: start: 202403, end: 20240314

REACTIONS (4)
  - Blood pressure increased [Unknown]
  - Headache [Unknown]
  - Nausea [Unknown]
  - Lymphocyte count decreased [Unknown]

NARRATIVE: CASE EVENT DATE: 20240301
